FAERS Safety Report 18049177 (Version 1)
Quarter: 2020Q3

REPORT INFORMATION
  Report Type: Spontaneous
  Country: US (occurrence: US)
  Receive Date: 20200721
  Receipt Date: 20200721
  Transmission Date: 20201103
  Serious: No
  Sender: FDA-Public Use
  Company Number: US-PFIZER INC-2020277135

PATIENT
  Age: 86 Year
  Sex: Male

DRUGS (1)
  1. LYRICA [Suspect]
     Active Substance: PREGABALIN
     Dosage: UNK, (PATIENT TAKES LYRICA 150 MG)

REACTIONS (3)
  - Vertigo [Recovering/Resolving]
  - Hypoacusis [Unknown]
  - Dizziness [Recovering/Resolving]
